FAERS Safety Report 8089422-8 (Version None)
Quarter: 2012Q1

REPORT INFORMATION
  Report Type: 
  Country: None (occurrence: None)
  Receive Date: 20120128
  Receipt Date: 20110805
  Transmission Date: 20120608
  Serious: No
  Sender: FDA-Public Use
  Company Number: US-ABBOTT-11P-163-0834820-00

PATIENT
  Sex: Male
  Weight: 92.616 kg

DRUGS (22)
  1. HUMIRA [Suspect]
     Indication: ARTHRITIS REACTIVE
  2. METHOTREXATE [Concomitant]
     Indication: ANKYLOSING SPONDYLITIS
     Dosage: 2.5 MG TABLETS WEEKLY ON SUNDAYS
     Route: 048
     Dates: end: 20110727
  3. PREDNISONE TAB [Concomitant]
     Indication: ANKYLOSING SPONDYLITIS
     Route: 048
  4. FOLIC ACID [Concomitant]
     Indication: VITAMIN SUPPLEMENTATION
     Route: 048
  5. FLEXERIL [Concomitant]
     Indication: ANKYLOSING SPONDYLITIS
     Dosage: AS REQUIRED
     Route: 048
  6. HYDROCODONE BITARTRATE [Concomitant]
     Indication: PAIN
     Dosage: AS REQUIRED
     Route: 048
  7. LISINOPRIL [Concomitant]
  8. BENADRYL [Concomitant]
     Indication: ALLERGIC SINUSITIS
     Dosage: AS REQUIRED- 1 IN 1 DAYS
     Route: 048
  9. HYDROCODONE BITARTRATE [Concomitant]
  10. METHOTREXATE [Concomitant]
     Indication: ARTHRITIS REACTIVE
  11. FLEXERIL [Concomitant]
  12. BUPROPION HYDROCHLORIDE [Concomitant]
     Indication: DEPRESSION
     Route: 048
  13. ALBUTEROL [Concomitant]
     Indication: CHRONIC OBSTRUCTIVE PULMONARY DISEASE
     Dosage: AS REQUIRED-2 IN 1 DAYS
     Route: 055
  14. HUMIRA [Suspect]
     Indication: ANKYLOSING SPONDYLITIS
     Route: 058
     Dates: start: 20110623
  15. LISINOPRIL [Concomitant]
     Indication: HYPERTENSION
     Route: 048
  16. AMITRIPTYLINE HCL [Concomitant]
     Indication: PRODUCT USED FOR UNKNOWN INDICATION
  17. GUAIFENESIN [Concomitant]
     Indication: ALLERGIC SINUSITIS
     Dosage: AS REQUIRED
     Route: 048
  18. ACIDOPHILUS [Concomitant]
     Indication: PROPHYLAXIS
     Route: 048
  19. MULTI-VITAMIN [Concomitant]
     Indication: VITAMIN SUPPLEMENTATION
     Route: 048
  20. PHENERGAN [Concomitant]
     Indication: PRODUCT USED FOR UNKNOWN INDICATION
  21. PRILOSEC [Concomitant]
     Indication: PRODUCT USED FOR UNKNOWN INDICATION
  22. SUDAFED 12 HOUR [Concomitant]
     Indication: ALLERGIC SINUSITIS
     Dosage: AS REQUIRED-1 IN 1 DAYS
     Route: 048

REACTIONS (6)
  - HEADACHE [None]
  - NAUSEA [None]
  - WEIGHT DECREASED [None]
  - EATING DISORDER [None]
  - DIARRHOEA [None]
  - INSOMNIA [None]
